FAERS Safety Report 7672269-1 (Version None)
Quarter: 2011Q3

REPORT INFORMATION
  Report Type: 
  Country: None (occurrence: None)
  Receive Date: 20110809
  Receipt Date: 20110801
  Transmission Date: 20111222
  Serious: Yes (Hospitalization)
  Sender: FDA-Public Use
  Company Number: FR-JNJFOC-20110801882

PATIENT
  Sex: Female

DRUGS (10)
  1. CRESTOR [Concomitant]
     Route: 065
  2. CLOPIDOGREL [Concomitant]
     Route: 065
  3. LOVENOX [Concomitant]
     Route: 065
  4. ISOSORBIDE DINITRATE [Concomitant]
     Route: 065
  5. REOPRO [Suspect]
     Indication: STENT PLACEMENT
     Route: 042
     Dates: start: 20110706
  6. HEPARIN [Concomitant]
     Route: 065
  7. PROGRAF [Concomitant]
     Route: 065
  8. PREDNISONE [Concomitant]
     Route: 065
  9. PLAVIX [Concomitant]
     Route: 065
  10. ASPIRIN [Concomitant]
     Route: 065

REACTIONS (1)
  - PANCYTOPENIA [None]
